FAERS Safety Report 19472482 (Version 2)
Quarter: 2022Q1

REPORT INFORMATION
  Report Type: Spontaneous
  Country: US (occurrence: US)
  Receive Date: 20210629
  Receipt Date: 20220120
  Transmission Date: 20220423
  Serious: No
  Sender: FDA-Public Use
  Company Number: US-PFIZER INC-2021508793

PATIENT
  Age: 67 Year
  Sex: Male

DRUGS (3)
  1. IBRANCE [Suspect]
     Active Substance: PALBOCICLIB
     Indication: Malignant connective tissue neoplasm
     Dosage: 125MG DAILY FOR 21 DAYS OFF 7 DAYS
     Route: 048
     Dates: start: 20210420
  2. IBRANCE [Suspect]
     Active Substance: PALBOCICLIB
     Indication: Soft tissue sarcoma
     Dosage: 125MG DAILY FOR 21 DAYS OFF 7 DAYS
     Route: 048
     Dates: start: 20210601
  3. IBRANCE [Suspect]
     Active Substance: PALBOCICLIB
     Dosage: 125 MG (ON DAYS 1-21 OF 28)
     Dates: start: 20210414, end: 20210621

REACTIONS (6)
  - Neoplasm progression [Unknown]
  - Product dose omission issue [Unknown]
  - Off label use [Unknown]
  - Nausea [Not Recovered/Not Resolved]
  - Diarrhoea [Not Recovered/Not Resolved]
  - Memory impairment [Unknown]
